FAERS Safety Report 10781611 (Version 2)
Quarter: 2015Q1

REPORT INFORMATION
  Report Type: Report from Study
  Country: CN (occurrence: CN)
  Receive Date: 20150210
  Receipt Date: 20150223
  Transmission Date: 20150721
  Serious: Yes (Hospitalization)
  Sender: FDA-Public Use
  Company Number: CN-ELI_LILLY_AND_COMPANY-CN201502000488

PATIENT
  Age: 65 Year
  Sex: Male
  Weight: 51.5 kg

DRUGS (3)
  1. HUMAN INSULIN [Suspect]
     Active Substance: INSULIN HUMAN
     Indication: DIABETES MELLITUS
     Dosage: UNK
     Route: 058
     Dates: start: 2005, end: 201307
  2. KALLIDINOGENASE [Concomitant]
     Active Substance: KALLIDINOGENASE
  3. EPALRESTAT [Concomitant]
     Active Substance: EPALRESTAT

REACTIONS (1)
  - Vomiting [Recovered/Resolved]
